FAERS Safety Report 9645525 (Version 2)
Quarter: 2013Q4

REPORT INFORMATION
  Report Type: Spontaneous
  Country: JP (occurrence: JP)
  Receive Date: 20131025
  Receipt Date: 20131101
  Transmission Date: 20140711
  Serious: Yes (Hospitalization, Other)
  Sender: FDA-Public Use
  Company Number: JP-BAYER-2013-129836

PATIENT
  Age: 47 Year
  Sex: Female

DRUGS (11)
  1. IOPROMIDE 370 [Suspect]
     Indication: COMPUTERISED TOMOGRAM
     Dosage: 77 ML, UNK
     Dates: start: 20131007, end: 20131007
  2. IOPROMIDE 370 [Suspect]
     Indication: HEPATOCELLULAR CARCINOMA
  3. MIGLITOL [Concomitant]
     Dosage: 50MGX3/DAY
     Route: 048
     Dates: start: 20110104
  4. METOPROLOL TARTRATE [Concomitant]
     Dosage: 20MGX2/DAY
     Route: 048
     Dates: start: 20110104
  5. BEZAFIBRATE [Concomitant]
     Dosage: 20MGX2/DAY
     Route: 048
     Dates: start: 20110606
  6. URSODEOXYCHOLIC ACID [Concomitant]
     Dosage: 100MGX6/DAY
     Route: 048
     Dates: start: 20130130
  7. TICAGRELOR [Concomitant]
     Dosage: DAILY DOSE 50 MG
     Route: 048
     Dates: start: 20130122
  8. SPIRONOLACTONE [Concomitant]
     Dosage: 12.5MG/DAY
     Route: 048
     Dates: start: 20130226
  9. TORASEMIDE [Concomitant]
     Dosage: 4MG/DAY
     Route: 048
     Dates: start: 20130906
  10. LEVOCETIRIZINE DIHYDROCHLORIDE [Concomitant]
     Dosage: 5 MG/DAY
     Route: 048
     Dates: start: 20130410
  11. BETAMETHASONE VALERATE [Concomitant]
     Dosage: 0.12% OINTMENT
     Route: 061
     Dates: start: 20091005

REACTIONS (2)
  - Stevens-Johnson syndrome [Recovering/Resolving]
  - Thrombocytopenia [Recovering/Resolving]
